FAERS Safety Report 4854224-X (Version None)
Quarter: 2005Q4

REPORT INFORMATION
  Report Type: 
  Country: None (occurrence: None)
  Receive Date: 20051213
  Receipt Date: 20051213
  Transmission Date: 20060501
  Serious: Yes (Hospitalization)
  Sender: FDA-Public Use
  Company Number: None

PATIENT
  Age: 57 Year
  Sex: Male
  Weight: 92 kg

DRUGS (6)
  1. GABAPENTIN [Suspect]
     Indication: NEUROPATHY PERIPHERAL
     Dosage: 300MG/600MG  AM+PM/HS PO
     Route: 048
     Dates: start: 20051113, end: 20051120
  2. FELODIPINE [Concomitant]
  3. RITONAVIR [Concomitant]
  4. EMTRICITABINE/TENOFOVIR [Concomitant]
  5. ATAZONAVIR [Concomitant]
  6. AMITRIPTYLINE [Concomitant]

REACTIONS (2)
  - PHARYNGEAL OEDEMA [None]
  - SWOLLEN TONGUE [None]
